FAERS Safety Report 12943532 (Version 1)
Quarter: 2016Q4

REPORT INFORMATION
  Report Type: Spontaneous
  Country: US (occurrence: US)
  Receive Date: 20161115
  Receipt Date: 20161115
  Transmission Date: 20170207
  Serious: No
  Sender: FDA-Public Use
  Company Number: US-ROCHE-1712956

PATIENT
  Sex: Female

DRUGS (1)
  1. TAMIFLU [Suspect]
     Active Substance: OSELTAMIVIR PHOSPHATE
     Indication: INFLUENZA
     Dosage: 1 CAPSULE, TWO TIMES A DAY; 5 DAY COURSE
     Route: 048
     Dates: start: 20160125

REACTIONS (2)
  - Rash [Recovered/Resolved]
  - Malaise [Recovered/Resolved]
